FAERS Safety Report 6244601-7 (Version None)
Quarter: 2009Q2

REPORT INFORMATION
  Report Type: 
  Country: None (occurrence: None)
  Receive Date: 20090623
  Receipt Date: 20090612
  Transmission Date: 20091009
  Serious: Yes (Hospitalization)
  Sender: FDA-Public Use
  Company Number: AX207-09-0288

PATIENT
  Age: 66 Year
  Sex: Male
  Weight: 106 kg

DRUGS (6)
  1. ABRAXANE [Suspect]
     Indication: TRANSITIONAL CELL CARCINOMA
     Dosage: (572 MG), INTRAVENOUS
     Route: 042
     Dates: start: 20090327
  2. AMITRIPTYLINE HYDROCHLORIDE [Concomitant]
  3. NORVASC [Concomitant]
  4. RABEPRAZOLE SODIUM [Concomitant]
  5. CODEINE SUL TAB [Concomitant]
  6. HYDROCHLOROTHIAZIDE [Concomitant]

REACTIONS (6)
  - BACTERIA URINE IDENTIFIED [None]
  - BLOOD POTASSIUM DECREASED [None]
  - HAEMOGLOBIN DECREASED [None]
  - KLEBSIELLA INFECTION [None]
  - PATHOGEN RESISTANCE [None]
  - PYELONEPHRITIS [None]
